FAERS Safety Report 10553439 (Version 2)
Quarter: 2014Q4

REPORT INFORMATION
  Report Type: Spontaneous
  Country: FI (occurrence: None)
  Receive Date: 20141028
  Receipt Date: 20141113
  Transmission Date: 20150529
  Serious: Yes (Death, Life-Threatening, Hospitalization)
  Sender: FDA-Public Use
  Company Number: 201402IM004962

PATIENT
  Age: 67 Year
  Sex: Male
  Weight: 99 kg

DRUGS (20)
  1. AZAMUN [Concomitant]
  2. SOMAC [Concomitant]
     Active Substance: PANTOPRAZOLE SODIUM
  3. SOMAC [Concomitant]
     Active Substance: PANTOPRAZOLE SODIUM
  4. OXYGEN. [Concomitant]
     Active Substance: OXYGEN
  5. NORADRENALIN [Concomitant]
     Active Substance: NOREPINEPHRINE\NOREPINEPHRINE BITARTRATE
  6. FENTANYL. [Concomitant]
     Active Substance: FENTANYL
  7. ACTRAPID [Concomitant]
     Active Substance: INSULIN HUMAN
  8. NITROGEN CARE [Concomitant]
  9. CISATRACURIUM NORAMED [Concomitant]
  10. SIMDAX [Concomitant]
     Active Substance: LEVOSIMENDAN
  11. ESBRIET [Suspect]
     Active Substance: PIRFENIDONE
     Indication: IDIOPATHIC PULMONARY FIBROSIS
     Dosage: 108
     Route: 048
     Dates: start: 20140103
  12. PREDNISOLON [Concomitant]
     Active Substance: PREDNISOLONE
  13. SIMVASTATIN. [Concomitant]
     Active Substance: SIMVASTATIN
  14. KALCIPOS-D [Concomitant]
     Active Substance: CALCIUM CARBONATE\CHOLECALCIFEROL
  15. AMIODARON [Concomitant]
     Active Substance: AMIODARONE
  16. MIDAZOLAM [Concomitant]
     Active Substance: MIDAZOLAM\MIDAZOLAM HYDROCHLORIDE
  17. SOLU-CORTEF [Concomitant]
     Active Substance: HYDROCORTISONE SODIUM SUCCINATE
  18. MAREVAN [Concomitant]
     Active Substance: WARFARIN SODIUM
  19. IPRAMOL [Concomitant]
     Active Substance: ALBUTEROL SULFATE\IPRATROPIUM BROMIDE
  20. ZINACEF [Concomitant]
     Active Substance: CEFUROXIME SODIUM

REACTIONS (7)
  - Eczema [None]
  - Fatigue [None]
  - Dilatation ventricular [None]
  - Pulmonary arterial pressure increased [None]
  - Electrocardiogram T wave inversion [None]
  - Syncope [None]
  - Erythema [None]

NARRATIVE: CASE EVENT DATE: 20140117
